FAERS Safety Report 10967459 (Version 2)
Quarter: 2016Q1

REPORT INFORMATION
  Report Type: Spontaneous
  Country: IT (occurrence: IT)
  Receive Date: 20150330
  Receipt Date: 20160125
  Transmission Date: 20160525
  Serious: Yes (Hospitalization)
  Sender: FDA-Public Use
  Company Number: IT-PFIZER INC-2015105600

PATIENT
  Age: 85 Year
  Sex: Male

DRUGS (14)
  1. EN [Suspect]
     Active Substance: DELORAZEPAM
     Dosage: 8 GTT, DAILY
     Route: 048
     Dates: start: 20110101, end: 20150106
  2. LUVION [Concomitant]
     Active Substance: CANRENONE
     Dosage: UNK
  3. TOTALIP [Concomitant]
     Active Substance: ATORVASTATIN
     Dosage: UNK
  4. LYRICA [Suspect]
     Active Substance: PREGABALIN
     Dosage: 75 MG, DAILY
     Route: 048
     Dates: start: 20110101, end: 20150106
  5. CONTRAMAL [Concomitant]
     Active Substance: TRAMADOL HYDROCHLORIDE
     Dosage: UNK
  6. SEROQUEL [Suspect]
     Active Substance: QUETIAPINE FUMARATE
     Indication: PSYCHOMOTOR HYPERACTIVITY
     Dosage: 150 MG, DAILY
     Route: 048
     Dates: start: 20110101
  7. FLUIFORT [Concomitant]
     Dosage: UNK
  8. VISTAGAN [Concomitant]
     Dosage: UNK
  9. ESOPRAL [Concomitant]
     Active Substance: ESOMEPRAZOLE MAGNESIUM
     Dosage: 40 MG, UNK
     Route: 048
  10. LASIX [Concomitant]
     Active Substance: FUROSEMIDE
     Dosage: 125 MG, UNK
     Route: 048
  11. MOVICOL [Concomitant]
     Active Substance: POLYETHYLENE GLYCOL 3350\POTASSIUM CHLORIDE\SODIUM BICARBONATE\SODIUM CHLORIDE
     Dosage: UNK
  12. CLEXANE [Concomitant]
     Active Substance: ENOXAPARIN SODIUM
     Dosage: UNK
  13. CARDIOASPIRIN [Concomitant]
     Active Substance: ASPIRIN
     Dosage: UNK
  14. HUMALOG [Concomitant]
     Active Substance: INSULIN LISPRO
     Dosage: 35 IU, UNK

REACTIONS (3)
  - Sopor [Recovered/Resolved]
  - Altered state of consciousness [Recovered/Resolved]
  - Dehydration [Recovered/Resolved]

NARRATIVE: CASE EVENT DATE: 20150106
